FAERS Safety Report 9958917 (Version 1)
Quarter: 2014Q1

REPORT INFORMATION
  Report Type: Report from Study
  Country: US (occurrence: US)
  Receive Date: 20140305
  Receipt Date: 20140305
  Transmission Date: 20141002
  Serious: No
  Sender: FDA-Public Use
  Company Number: US-ABBVIE-13P-163-1102133-00

PATIENT
  Age: 59 Year
  Sex: Male

DRUGS (9)
  1. HUMIRA [Suspect]
     Indication: CROHN^S DISEASE
     Dates: start: 20130304
  2. ASACOL [Concomitant]
     Indication: CROHN^S DISEASE
  3. VALSARTAN/HYDROCHLOORTHIAZIDE [Concomitant]
     Indication: HYPERTENSION
     Dosage: 300/125MG
  4. XANAX [Concomitant]
     Indication: ANXIETY
  5. RANITIDINE [Concomitant]
     Indication: GASTROOESOPHAGEAL REFLUX DISEASE
  6. SYMBICORT [Concomitant]
     Indication: ASTHMA
  7. DOCUSATE SODIUM [Concomitant]
     Indication: CROHN^S DISEASE
     Dosage: 2 DAILY
  8. SORIATANE [Concomitant]
     Indication: PSORIASIS
  9. ADVIL [Concomitant]
     Indication: PAIN

REACTIONS (4)
  - Frequent bowel movements [Not Recovered/Not Resolved]
  - Haematochezia [Not Recovered/Not Resolved]
  - Abdominal discomfort [Not Recovered/Not Resolved]
  - Pain [Not Recovered/Not Resolved]
